FAERS Safety Report 4273553-4 (Version None)
Quarter: 2004Q1

REPORT INFORMATION
  Report Type: 
  Country: None (occurrence: None)
  Receive Date: 20040114
  Receipt Date: 20020214
  Transmission Date: 20041129
  Serious: Yes (Death)
  Sender: FDA-Public Use
  Company Number: KII-2002-0006739

PATIENT

DRUGS (1)
  1. OXYCONTIN [Suspect]
     Dosage: 30 MG, Q12H

REACTIONS (1)
  - DEATH [None]
